FAERS Safety Report 4409809-1 (Version None)
Quarter: 2004Q3

REPORT INFORMATION
  Report Type: 
  Country: None (occurrence: None)
  Receive Date: 20040723
  Receipt Date: 20040712
  Transmission Date: 20050211
  Serious: Yes (Hospitalization)
  Sender: FDA-Public Use
  Company Number: 04USA0127

PATIENT
  Sex: Male

DRUGS (14)
  1. GLIADEL [Suspect]
     Indication: GLIOBLASTOMA MULTIFORME
     Dosage: (7.7 MG PER WAFER MAX 8 WAFERS.). IMPLANT
     Dates: start: 20040617
  2. 06-BENXYLGUARINE (O6BG) [Suspect]
     Indication: GLIOBLASTOMA MULTIFORME
     Dosage: (120 MG/M2 INFUSION IN FIVE DAYS)
     Dates: start: 20040617, end: 20040622
  3. CALCIUM [Concomitant]
  4. CIPRO (500 MILLIGRAM TABLETS) [Concomitant]
  5. COUMADIN [Concomitant]
  6. DECADRON [Concomitant]
  7. DILANTIN [Concomitant]
  8. NORVASC [Concomitant]
  9. LISINOPRIL [Concomitant]
  10. SYNTHROID [Concomitant]
  11. LUXAPRO [Concomitant]
  12. SAW PALMETTO [Concomitant]
  13. MULTI-VITAMIN [Concomitant]
  14. LEPIRUDICIN [Concomitant]

REACTIONS (3)
  - BLOOD SODIUM DECREASED [None]
  - DEEP VEIN THROMBOSIS [None]
  - ESCHERICHIA INFECTION [None]
